FAERS Safety Report 5305816-5 (Version None)
Quarter: 2007Q2

REPORT INFORMATION
  Report Type: 
  Country: None (occurrence: None)
  Receive Date: 20070424
  Receipt Date: 20070412
  Transmission Date: 20071010
  Serious: Yes (Hospitalization)
  Sender: FDA-Public Use
  Company Number: BE-ELI_LILLY_AND_COMPANY-BE200612000567

PATIENT
  Age: 69 Year
  Sex: Female

DRUGS (2)
  1. FORTEO [Suspect]
     Indication: OSTEOPOROSIS
     Dosage: 20 UG, DAILY (1/D)
     Route: 058
     Dates: start: 20060807, end: 20061205
  2. FORTEO [Suspect]
     Dosage: UNK UG, UNK
     Route: 058
     Dates: start: 20070407

REACTIONS (2)
  - HYPERTENSION [None]
  - WEIGHT DECREASED [None]
